FAERS Safety Report 5872441-7 (Version None)
Quarter: 2008Q3

REPORT INFORMATION
  Report Type: 
  Country: None (occurrence: None)
  Receive Date: 20080905
  Receipt Date: 20080828
  Transmission Date: 20090109
  Serious: Yes (Hospitalization)
  Sender: FDA-Public Use
  Company Number: PHHY2008FR19557

PATIENT
  Age: 73 Year
  Sex: Female

DRUGS (5)
  1. VALSARTAN [Suspect]
     Indication: HYPERTENSION
     Dosage: UNK
     Dates: start: 20080201, end: 20080617
  2. MOPRAL [Suspect]
     Dosage: UNK
     Dates: start: 20060401, end: 20080617
  3. BISOPROLOL FUMARATE [Concomitant]
     Indication: HYPERTENSION
     Dosage: 2.5 MG, QD
     Dates: start: 20060401
  4. ASPIRIN [Concomitant]
     Dosage: 75 MG, QD
     Dates: start: 20060401
  5. CORTANCYL [Concomitant]
     Indication: TEMPORAL ARTERITIS
     Dosage: 40 MG, QD
     Dates: start: 20060401

REACTIONS (4)
  - CONDITION AGGRAVATED [None]
  - NEPHRITIS INTERSTITIAL [None]
  - RENAL FAILURE ACUTE [None]
  - TEMPORAL ARTERITIS [None]
